FAERS Safety Report 19091766 (Version 1)
Quarter: 2021Q2

REPORT INFORMATION
  Report Type: Spontaneous
  Country: FR (occurrence: FR)
  Receive Date: 20210405
  Receipt Date: 20210405
  Transmission Date: 20210717
  Serious: Yes (Hospitalization, Other)
  Sender: FDA-Public Use
  Company Number: FR-SA-2021SA111302

PATIENT
  Age: 38 Year
  Sex: Male

DRUGS (4)
  1. TRAMADOL HYDROCHLORIDE. [Suspect]
     Active Substance: TRAMADOL HYDROCHLORIDE
     Indication: LIGAMENT SPRAIN
     Dosage: 50 MG, TOTAL
     Route: 048
     Dates: start: 20191129, end: 20191129
  2. PARACETAMOL [Suspect]
     Active Substance: ACETAMINOPHEN
     Indication: LIGAMENT SPRAIN
     Dosage: 4 G, QD
     Route: 048
     Dates: start: 20191127, end: 20191201
  3. KETOPROFEN. [Suspect]
     Active Substance: KETOPROFEN
     Indication: LIGAMENT SPRAIN
     Dosage: 1 DF, TOTAL
     Route: 048
     Dates: start: 20191128, end: 20191128
  4. LOVENOX [Suspect]
     Active Substance: ENOXAPARIN SODIUM
     Indication: LIGAMENT SPRAIN
     Dosage: 40 MG, QD
     Route: 058
     Dates: start: 20191127, end: 20191201

REACTIONS (2)
  - Hepatocellular injury [Recovering/Resolving]
  - Palatal oedema [Recovered/Resolved]

NARRATIVE: CASE EVENT DATE: 20191201
